FAERS Safety Report 13356506 (Version 1)
Quarter: 2017Q1

REPORT INFORMATION
  Report Type: Spontaneous
  Country: AU (occurrence: AU)
  Receive Date: 20170321
  Receipt Date: 20170321
  Transmission Date: 20170429
  Serious: Yes (Hospitalization, Other)
  Sender: FDA-Public Use
  Company Number: AU-PFIZER INC-HQWYE879020APR06

PATIENT
  Age: 51 Year
  Sex: Female

DRUGS (2)
  1. EFEXOR [Suspect]
     Active Substance: VENLAFAXINE HYDROCHLORIDE
     Indication: DEPRESSION
     Dosage: 300 MG, 1X/DAY
     Route: 048
  2. OROXINE [Concomitant]
     Active Substance: LEVOTHYROXINE SODIUM
     Dosage: UNK

REACTIONS (18)
  - Automatism [Unknown]
  - Intentional self-injury [Unknown]
  - Suicide attempt [Unknown]
  - Confusional state [Unknown]
  - Delirium [Unknown]
  - Enuresis [Unknown]
  - Musculoskeletal pain [Unknown]
  - Physical assault [Unknown]
  - Psychomotor hyperactivity [Unknown]
  - Drug withdrawal syndrome [Unknown]
  - Serotonin syndrome [Unknown]
  - Liver function test abnormal [Unknown]
  - Mood altered [Unknown]
  - Chest pain [Unknown]
  - Violence-related symptom [Unknown]
  - Aggression [Unknown]
  - Akathisia [Unknown]
  - Agitation [Unknown]

NARRATIVE: CASE EVENT DATE: 2003
